FAERS Safety Report 8170784-8 (Version None)
Quarter: 2012Q1

REPORT INFORMATION
  Report Type: 
  Country: None (occurrence: None)
  Receive Date: 20120228
  Receipt Date: 20120216
  Transmission Date: 20120608
  Serious: Yes (Other)
  Sender: FDA-Public Use
  Company Number: US-PFIZER INC-2012050927

PATIENT
  Sex: Male

DRUGS (2)
  1. VALIUM [Suspect]
     Indication: DRUG ABUSE
     Dosage: UNK
     Route: 065
  2. MORPHINE [Suspect]
     Dosage: UNK

REACTIONS (3)
  - DRUG ABUSE [None]
  - SOMNOLENCE [None]
  - BELLIGERENCE [None]
